FAERS Safety Report 25715465 (Version 1)
Quarter: 2025Q3

REPORT INFORMATION
  Report Type: Spontaneous
  Country: ID (occurrence: ID)
  Receive Date: 20250822
  Receipt Date: 20250822
  Transmission Date: 20251020
  Serious: Yes (Disabling, Other)
  Sender: MACLEODS
  Company Number: ID-MACLEODS PHARMA-MAC2025054720

PATIENT

DRUGS (7)
  1. LINEZOLID [Suspect]
     Active Substance: LINEZOLID
     Indication: Tuberculosis
     Route: 065
     Dates: start: 202104, end: 2022
  2. BEDAQUILINE [Concomitant]
     Active Substance: BEDAQUILINE
     Indication: Tuberculosis
     Route: 065
     Dates: start: 202104
  3. LEVOFLOXACIN [Concomitant]
     Active Substance: LEVOFLOXACIN
     Indication: Tuberculosis
     Route: 065
     Dates: start: 202104
  4. CLOFAZIMINE [Concomitant]
     Active Substance: CLOFAZIMINE
     Indication: Tuberculosis
     Route: 065
     Dates: start: 202104
  5. CYCLOSERINE [Concomitant]
     Active Substance: CYCLOSERINE
     Indication: Tuberculosis
     Route: 065
     Dates: start: 202104
  6. PYRIDOXINE HYDROCHLORIDE [Concomitant]
     Active Substance: PYRIDOXINE HYDROCHLORIDE
     Indication: Tuberculosis
     Route: 065
     Dates: start: 202104
  7. SODIUM CHLORIDE [Concomitant]
     Active Substance: SODIUM CHLORIDE
     Route: 065

REACTIONS (2)
  - Optic neuritis [Recovering/Resolving]
  - Optic neuropathy [Recovered/Resolved]

NARRATIVE: CASE EVENT DATE: 20220201
